FAERS Safety Report 26032622 (Version 2)
Quarter: 2025Q4

REPORT INFORMATION
  Report Type: Spontaneous
  Country: EU (occurrence: EU)
  Receive Date: 20251112
  Receipt Date: 20251124
  Transmission Date: 20260117
  Serious: Yes (Death, Other)
  Sender: BIOVITRUM
  Company Number: EU-BIOVITRUM-2025-ES-015437

PATIENT
  Age: 58 Year
  Sex: Female

DRUGS (3)
  1. GAMIFANT [Suspect]
     Active Substance: EMAPALUMAB-LZSG
     Indication: Product used for unknown indication
  2. ANAKINRA [Suspect]
     Active Substance: ANAKINRA
     Indication: Diffuse large B-cell lymphoma
     Dosage: EVERY 6 HOURS
  3. DEXAMETHASONE [Suspect]
     Active Substance: DEXAMETHASONE
     Indication: Product used for unknown indication
     Dosage: 20 MG EVERY HOURS

REACTIONS (9)
  - Off label use [Unknown]
  - Nervous system disorder [Unknown]
  - Immune effector cell-associated neurotoxicity syndrome [Unknown]
  - Haemophagocytic lymphohistiocytosis [Unknown]
  - Hypofibrinogenaemia [Unknown]
  - Hyperferritinaemia [Unknown]
  - Hypertriglyceridaemia [Unknown]
  - Cytopenia [Unknown]
  - Death [Fatal]
